FAERS Safety Report 7606156-1 (Version None)
Quarter: 2011Q3

REPORT INFORMATION
  Report Type: 
  Country: None (occurrence: None)
  Receive Date: 20110713
  Receipt Date: 20110706
  Transmission Date: 20111222
  Serious: Yes (Other)
  Sender: FDA-Public Use
  Company Number: RS-ASTRAZENECA-2011SE40013

PATIENT
  Age: 22149 Day
  Sex: Male
  Weight: 82 kg

DRUGS (5)
  1. BISOPROLOL FUMARATE [Concomitant]
     Route: 048
  2. PERINDOPRIL [Concomitant]
     Route: 048
  3. FELODIPINE [Suspect]
     Indication: HYPERTENSION
     Route: 048
     Dates: start: 20110615, end: 20110615
  4. ASPIRIN [Concomitant]
     Route: 048
  5. SIMVASTATIN [Concomitant]
     Route: 048

REACTIONS (3)
  - FATIGUE [None]
  - PAIN [None]
  - NAUSEA [None]
